FAERS Safety Report 25601377 (Version 1)
Quarter: 2025Q3

REPORT INFORMATION
  Report Type: Spontaneous
  Country: US (occurrence: US)
  Receive Date: 20250724
  Receipt Date: 20250724
  Transmission Date: 20251021
  Serious: Yes (Hospitalization)
  Sender: MYLAN
  Company Number: US-MYLANLABS-2025M1061419

PATIENT
  Sex: Female

DRUGS (4)
  1. COLCHICINE [Suspect]
     Active Substance: COLCHICINE
     Indication: Pleuritic pain
  2. COLCHICINE [Suspect]
     Active Substance: COLCHICINE
     Indication: Chest pain
     Route: 065
  3. COLCHICINE [Suspect]
     Active Substance: COLCHICINE
     Route: 065
  4. COLCHICINE [Suspect]
     Active Substance: COLCHICINE

REACTIONS (2)
  - Drug ineffective for unapproved indication [Unknown]
  - Off label use [Unknown]
